FAERS Safety Report 8854035 (Version 1)
Quarter: 2012Q4

REPORT INFORMATION
  Report Type: Spontaneous
  Country: US (occurrence: None)
  Receive Date: 20121019
  Receipt Date: 20121019
  Transmission Date: 20130627
  Serious: Yes (Other)
  Sender: FDA-Public Use
  Company Number: None

PATIENT
  Sex: Female
  Weight: 119.3 kg

DRUGS (2)
  1. DIVALPROEX SODIUM [Suspect]
     Indication: BIPOLAR DEPRESSION
     Dosage: Fall of 2008 - Currently (Now)
500 mg 1 x Daily
     Dates: start: 2008
  2. DIVALPROEX SODIUM [Suspect]
     Dosage: Fall of 2008 - Currently (Now)
500 mg 1 x Daily
     Dates: start: 2008

REACTIONS (3)
  - Photosensitivity reaction [None]
  - Rash pruritic [None]
  - Rash generalised [None]
